FAERS Safety Report 21018728 (Version 3)
Quarter: 2023Q2

REPORT INFORMATION
  Report Type: Spontaneous
  Country: US (occurrence: US)
  Receive Date: 20220628
  Receipt Date: 20230519
  Transmission Date: 20230722
  Serious: Yes (Other)
  Sender: FDA-Public Use
  Company Number: US-PFIZER INC-202200716892

PATIENT
  Age: 73 Year
  Sex: Male
  Weight: 102.97 kg

DRUGS (5)
  1. VYNDAMAX [Suspect]
     Active Substance: TAFAMIDIS
     Indication: Pain in extremity
     Dosage: 61 MG, 1X/DAY
     Dates: start: 20220501
  2. VYNDAMAX [Suspect]
     Active Substance: TAFAMIDIS
     Indication: Hypoaesthesia
     Dosage: 61 MG, DAILY (61 MG ONE TABLET A DAY AROUND NOON)
  3. VYNDAMAX [Suspect]
     Active Substance: TAFAMIDIS
     Indication: Peripheral swelling
  4. VYNDAMAX [Suspect]
     Active Substance: TAFAMIDIS
     Indication: Amyloidosis
  5. ABIRATERONE [Concomitant]
     Active Substance: ABIRATERONE
     Indication: Prostate cancer
     Dosage: 1000 MG, DAILY (250MG, 4 TABLETS IN MORNING ON AN EMPTY STOMACH)
     Dates: start: 202209

REACTIONS (5)
  - Paralysis [Unknown]
  - Off label use [Unknown]
  - Drug effective for unapproved indication [Unknown]
  - Pain [Unknown]
  - Peripheral swelling [Not Recovered/Not Resolved]

NARRATIVE: CASE EVENT DATE: 20220501
